FAERS Safety Report 8956449 (Version 1)
Quarter: 2012Q4

REPORT INFORMATION
  Report Type: 
  Country: US (occurrence: US)
  Receive Date: 20121210
  Receipt Date: 20121210
  Transmission Date: 20130627
  Serious: No
  Sender: FDA-Public Use
  Company Number: US-PFIZER INC-2012308968

PATIENT
  Age: 75 Year
  Sex: Female
  Weight: 65.76 kg

DRUGS (4)
  1. LYRICA [Suspect]
     Indication: PAIN IN FACE
     Dosage: 75 mg, 2x/day
     Dates: start: 20121113
  2. LYRICA [Suspect]
     Indication: SHINGLES
  3. METFORMIN [Concomitant]
     Indication: TYPE II DIABETES MELLITUS
     Dosage: UNK
  4. LIDOCAINE [Concomitant]
     Indication: SHINGLES
     Dosage: UNK
     Dates: start: 201211

REACTIONS (2)
  - Drug ineffective [Not Recovered/Not Resolved]
  - Nasopharyngitis [Not Recovered/Not Resolved]
